FAERS Safety Report 12539790 (Version 1)
Quarter: 2016Q3

REPORT INFORMATION
  Report Type: Spontaneous
  Country: GB (occurrence: GB)
  Receive Date: 20160708
  Receipt Date: 20160708
  Transmission Date: 20161109
  Serious: Yes (Hospitalization)
  Sender: FDA-Public Use
  Company Number: GB-PFIZER INC-1583315

PATIENT
  Age: 38 Year
  Sex: Male
  Weight: 88.9 kg

DRUGS (8)
  1. MINOCYCLINE [Suspect]
     Active Substance: MINOCYCLINE\MINOCYCLINE HYDROCHLORIDE
     Indication: PRODUCT USED FOR UNKNOWN INDICATION
     Route: 065
  2. OMEPRAZOLE. [Suspect]
     Active Substance: OMEPRAZOLE
     Indication: ABDOMINAL PAIN
     Dosage: 20 MG, UNK
     Route: 065
  3. SEROQUEL [Suspect]
     Active Substance: QUETIAPINE FUMARATE
     Indication: ANXIETY
     Route: 065
  4. AMOXICILLIN. [Concomitant]
     Active Substance: AMOXICILLIN
     Indication: PRODUCT USED FOR UNKNOWN INDICATION
  5. MACROGOL 3350 [Concomitant]
     Active Substance: POLYETHYLENE GLYCOL 3350
     Indication: PRODUCT USED FOR UNKNOWN INDICATION
     Route: 065
  6. CIPROFLOXACIN. [Suspect]
     Active Substance: CIPROFLOXACIN
     Indication: PRODUCT USED FOR UNKNOWN INDICATION
     Route: 065
  7. DOXYCYCLINE. [Suspect]
     Active Substance: DOXYCYCLINE
     Indication: URINARY TRACT INFECTION
     Route: 065
  8. NITROFURANTOIN. [Suspect]
     Active Substance: NITROFURANTOIN
     Indication: PRODUCT USED FOR UNKNOWN INDICATION
     Route: 065

REACTIONS (33)
  - Dehydration [Unknown]
  - Skin exfoliation [Unknown]
  - Chromaturia [Unknown]
  - Toxicity to various agents [Not Recovered/Not Resolved]
  - Hair disorder [Unknown]
  - Malaise [Unknown]
  - Alopecia [Unknown]
  - Skin discolouration [Unknown]
  - Melanocytic naevus [Unknown]
  - Gastrooesophageal reflux disease [Unknown]
  - Drug ineffective [Unknown]
  - Nausea [Unknown]
  - Bone pain [Unknown]
  - Hair colour changes [Unknown]
  - Skin depigmentation [Unknown]
  - Skin disorder [Unknown]
  - Tendon disorder [Unknown]
  - Tooth injury [Unknown]
  - Gastric ulcer [Unknown]
  - Dental caries [Unknown]
  - Protein total abnormal [Not Recovered/Not Resolved]
  - Photosensitivity reaction [Unknown]
  - Breast inflammation [Unknown]
  - Gastrointestinal disorder [Unknown]
  - Visual impairment [Unknown]
  - Headache [Unknown]
  - Mass [Unknown]
  - Thirst [Unknown]
  - Prostatic disorder [Unknown]
  - Gastritis [Not Recovered/Not Resolved]
  - Abdominal discomfort [Unknown]
  - Tendonitis [Unknown]
  - Vomiting [Unknown]

NARRATIVE: CASE EVENT DATE: 20110930
